FAERS Safety Report 6345223-X (Version None)
Quarter: 2009Q3

REPORT INFORMATION
  Report Type: 
  Country: None (occurrence: None)
  Receive Date: 20090909
  Receipt Date: 20090828
  Transmission Date: 20100115
  Serious: Yes (Other)
  Sender: FDA-Public Use
  Company Number: PHHY2009MX34853

PATIENT
  Sex: Female

DRUGS (3)
  1. DIOVAN HCT [Suspect]
     Indication: HYPERTENSION
     Dosage: 1 TABLET (80/12.5 MG ) PER DAY
     Dates: start: 20050101
  2. DIOVAN HCT [Suspect]
     Dosage: 1 TABLET (80/12.5 MG)
     Dates: start: 20090101
  3. OMEPRAZOL [Concomitant]

REACTIONS (5)
  - BLOOD PRESSURE DECREASED [None]
  - DELIRIUM [None]
  - DIARRHOEA HAEMORRHAGIC [None]
  - HAEMATOCHEZIA [None]
  - PYREXIA [None]
